FAERS Safety Report 6875902-7 (Version None)
Quarter: 2010Q2

REPORT INFORMATION
  Report Type: 
  Country: None (occurrence: None)
  Receive Date: 20100616
  Receipt Date: 20100413
  Transmission Date: 20101027
  Serious: Yes (Disabling, Other)
  Sender: FDA-Public Use
  Company Number: DSA_42672_2010

PATIENT
  Sex: Female
  Weight: 87.0906 kg

DRUGS (2)
  1. XENAZINE [Suspect]
     Indication: DYSKINESIA
     Dosage: (25 MG TID ORAL)
     Route: 048
     Dates: start: 20070101, end: 20091101
  2. ABILIFY [Concomitant]

REACTIONS (1)
  - DEPRESSION [None]
